FAERS Safety Report 20467246 (Version 1)
Quarter: 2022Q1

REPORT INFORMATION
  Report Type: Report from Study
  Country: KR (occurrence: KR)
  Receive Date: 20220214
  Receipt Date: 20220214
  Transmission Date: 20220423
  Serious: Yes (Death, Other)
  Sender: FDA-Public Use
  Company Number: KR-BRISTOL-MYERS SQUIBB COMPANY-BMS-2022-020276

PATIENT
  Age: 77 Year
  Sex: Male

DRUGS (3)
  1. IPILIMUMAB [Suspect]
     Active Substance: IPILIMUMAB
     Indication: Non-small cell lung cancer
     Dosage: 50 MG/10 ML ONCE
     Route: 042
     Dates: start: 20211209, end: 20211209
  2. OPDIVO [Suspect]
     Active Substance: NIVOLUMAB
     Indication: Non-small cell lung cancer
     Dosage: 300 MG/30 ML ONCE
     Route: 042
     Dates: start: 20211209, end: 20211209
  3. OPDIVO [Suspect]
     Active Substance: NIVOLUMAB
     Dosage: 60 MG/6 ML ONCE
     Route: 042
     Dates: start: 20211209, end: 20211209

REACTIONS (1)
  - Death [Fatal]

NARRATIVE: CASE EVENT DATE: 20220205
